FAERS Safety Report 4945208-1 (Version None)
Quarter: 2006Q1

REPORT INFORMATION
  Report Type: 
  Country: None (occurrence: None)
  Receive Date: 20060316
  Receipt Date: 20060307
  Transmission Date: 20060701
  Serious: Yes (Hospitalization)
  Sender: FDA-Public Use
  Company Number: GB-AVENTIS-200611467EU

PATIENT
  Age: 63 Year
  Sex: Male

DRUGS (6)
  1. FUROSEMIDE [Suspect]
     Indication: CARDIAC FAILURE CONGESTIVE
  2. INDOMETHACIN [Suspect]
     Indication: DRUG USE FOR UNKNOWN INDICATION
  3. DIGOXIN [Concomitant]
     Indication: CARDIAC FAILURE CONGESTIVE
  4. SPIRONOLACTONE [Concomitant]
     Indication: CARDIAC FAILURE CONGESTIVE
  5. ISOSORBIDE DINITRATE [Concomitant]
     Indication: CARDIAC FAILURE CONGESTIVE
  6. ALLOPURINOL [Concomitant]
     Indication: GOUT

REACTIONS (4)
  - CARDIAC FAILURE CONGESTIVE [None]
  - DRUG INTERACTION [None]
  - GENERALISED OEDEMA [None]
  - TRICUSPID VALVE INCOMPETENCE [None]
